FAERS Safety Report 24970145 (Version 2)
Quarter: 2025Q1

REPORT INFORMATION
  Report Type: Other
  Country: IN (occurrence: IN)
  Receive Date: 20250214
  Receipt Date: 20250227
  Transmission Date: 20250409
  Serious: Yes (Other)
  Sender: ALVOGEN
  Company Number: IN-ALVOGEN-2025096275

PATIENT
  Age: 40 Year
  Sex: Male

DRUGS (1)
  1. SERTRALINE [Suspect]
     Active Substance: SERTRALINE HYDROCHLORIDE
     Indication: Obsessive-compulsive disorder

REACTIONS (3)
  - Deafness neurosensory [Recovering/Resolving]
  - Loss of personal independence in daily activities [Unknown]
  - Emotional distress [Unknown]
